FAERS Safety Report 6930170-2 (Version None)
Quarter: 2010Q3

REPORT INFORMATION
  Report Type: 
  Country: None (occurrence: None)
  Receive Date: 20100818
  Receipt Date: 20100721
  Transmission Date: 20110219
  Serious: No
  Sender: FDA-Public Use
  Company Number: US-PFIZER INC-2010063614

PATIENT
  Sex: Female

DRUGS (1)
  1. NIFEDIPINE [Suspect]
     Indication: BLOOD PRESSURE
     Dosage: 90 MG, 1X/DAY
     Dates: start: 20091101

REACTIONS (1)
  - DRUG INEFFECTIVE [None]
